FAERS Safety Report 17409202 (Version 3)
Quarter: 2020Q1

REPORT INFORMATION
  Report Type: Other
  Country: AE (occurrence: AE)
  Receive Date: 20200212
  Receipt Date: 20200320
  Transmission Date: 20200409
  Serious: Yes (Other)
  Sender: FDA-Public Use
  Company Number: GB-RECORDATI RARE DISEASES-2080195

PATIENT
  Age: 8 Year
  Sex: Female

DRUGS (5)
  1. CYSTADANE [Suspect]
     Active Substance: BETAINE
     Indication: HOMOCYSTINURIA
     Route: 048
  2. VITAMIN B6 [Concomitant]
     Active Substance: PYRIDOXINE HYDROCHLORIDE
     Route: 048
  3. VITAMIN B12 [HYDROXOCOBALAMIN] [Concomitant]
     Active Substance: HYDROXOCOBALAMIN
     Route: 042
  4. ASPIRIN. [Concomitant]
     Active Substance: ASPIRIN
     Route: 048
  5. FOLIC ACID. [Concomitant]
     Active Substance: FOLIC ACID
     Route: 048

REACTIONS (10)
  - Intellectual disability [Unknown]
  - White matter lesion [Recovering/Resolving]
  - Brain oedema [Unknown]
  - Leukoencephalopathy [Unknown]
  - Myopia [Unknown]
  - Intracranial pressure increased [Unknown]
  - Scoliosis [Unknown]
  - Headache [Unknown]
  - Hypermethioninaemia [Unknown]
  - Treatment noncompliance [Unknown]
